FAERS Safety Report 6404779-9 (Version None)
Quarter: 2009Q4

REPORT INFORMATION
  Report Type: 
  Country: None (occurrence: None)
  Receive Date: 20091016
  Receipt Date: 20091006
  Transmission Date: 20100525
  Serious: Yes (Hospitalization)
  Sender: FDA-Public Use
  Company Number: PHHY2009CL43518

PATIENT
  Age: 82 Year
  Sex: Female

DRUGS (1)
  1. EXFORGE [Suspect]
     Indication: INFARCTION
     Dosage: 160/10 MG, UNK

REACTIONS (1)
  - SKIN ULCER [None]
